FAERS Safety Report 13954466 (Version 2)
Quarter: 2017Q4

REPORT INFORMATION
  Report Type: Spontaneous
  Country: JP (occurrence: JP)
  Receive Date: 20170911
  Receipt Date: 20171113
  Transmission Date: 20180320
  Serious: Yes (Hospitalization, Other)
  Sender: FDA-Public Use
  Company Number: JP-009507513-1709JPN000241J

PATIENT
  Age: 70 Year
  Sex: Male
  Weight: 55 kg

DRUGS (11)
  1. DOMPERIDONE [Concomitant]
     Active Substance: DOMPERIDONE
     Indication: LUNG ADENOCARCINOMA
     Dosage: 10 MG, THREE TIMES A DAY
     Route: 048
  2. NEXIUM [Concomitant]
     Active Substance: ESOMEPRAZOLE MAGNESIUM
     Indication: LUNG ADENOCARCINOMA
     Dosage: 20 MG, ONCE DAILY
     Route: 048
  3. OLMETEC [Concomitant]
     Active Substance: OLMESARTAN MEDOXOMIL
     Indication: LUNG ADENOCARCINOMA
     Dosage: 20 MG, ONCE DAILY
     Route: 048
  4. ISOBIDE [Concomitant]
     Active Substance: ISOSORBIDE
     Indication: LUNG ADENOCARCINOMA
     Dosage: 20 ML, THREE TIMES A DAY
     Route: 048
  5. BAKTAR [Concomitant]
     Active Substance: SULFAMETHOXAZOLE\TRIMETHOPRIM
     Indication: LUNG ADENOCARCINOMA
     Dosage: 1 TABLET, ONCE DAILY
     Route: 048
  6. ONEALFA [Concomitant]
     Active Substance: ALFACALCIDOL
     Indication: LUNG ADENOCARCINOMA
     Dosage: 1 MICROGRAM, ONCE DAILY
     Route: 048
  7. AMLODIPINE [Concomitant]
     Active Substance: AMLODIPINE BESYLATE
     Indication: LUNG ADENOCARCINOMA
     Dosage: 2.5 MG, ONCE DAILY
     Route: 048
  8. BROTIZOLAM OD [Concomitant]
     Indication: LUNG ADENOCARCINOMA
     Dosage: 0.25 MG, WHEN REQUIRED
     Route: 048
  9. DECADRON [Concomitant]
     Active Substance: DEXAMETHASONE
     Indication: LUNG ADENOCARCINOMA
     Dosage: 1 MG, ONCE DAILY
     Route: 048
  10. SODIUM CHLORIDE. [Concomitant]
     Active Substance: SODIUM CHLORIDE
     Dosage: 1 G, THREE TIMES A DAY
     Route: 048
  11. KEYTRUDA [Suspect]
     Active Substance: PEMBROLIZUMAB
     Indication: LUNG ADENOCARCINOMA
     Dosage: 200 MG, ONCE EVERY 3 WEEKS
     Route: 041
     Dates: start: 20170601, end: 20170713

REACTIONS (2)
  - Acute kidney injury [Recovered/Resolved]
  - Blood creatine phosphokinase increased [Recovered/Resolved]

NARRATIVE: CASE EVENT DATE: 20170719
